FAERS Safety Report 8419078 (Version 2)
Quarter: 2012Q4

REPORT INFORMATION
  Report Type: 
  Country: CA (occurrence: CA)
  Receive Date: 20120221
  Receipt Date: 20120905
  Transmission Date: 20130627
  Serious: Yes (Hospitalization)
  Sender: FDA-Public Use
  Company Number: CA-B.I. PHARMACEUTICALS,INC./RIDGEFIELD-2012-CN-00304CN

PATIENT
  Age: 70 Year
  Sex: Male

DRUGS (7)
  1. PRADAX [Suspect]
     Dosage: 150 mg
     Route: 048
  2. DOMPERIDONE [Concomitant]
     Route: 065
  3. LIPITOR [Concomitant]
     Route: 065
  4. LORAZEPAM [Concomitant]
     Route: 065
  5. METFORMIN [Concomitant]
     Route: 065
  6. MULTAQ [Concomitant]
     Route: 065
  7. TRAMACET [Concomitant]
     Route: 065

REACTIONS (11)
  - Alanine aminotransferase abnormal [Recovered/Resolved]
  - Aspartate aminotransferase abnormal [Recovered/Resolved]
  - Bilirubin conjugated abnormal [Recovered/Resolved]
  - Blood alkaline phosphatase abnormal [Recovered/Resolved]
  - Blood glucose abnormal [Recovered/Resolved]
  - Gamma-glutamyltransferase abnormal [Recovered/Resolved]
  - Haemoglobin abnormal [Recovered/Resolved]
  - Hepatic steatosis [Recovered/Resolved]
  - Hepatitis [Recovered/Resolved]
  - Jaundice [Recovered/Resolved]
  - Platelet count abnormal [Recovered/Resolved]
